FAERS Safety Report 7230991-5 (Version None)
Quarter: 2011Q1

REPORT INFORMATION
  Report Type: 
  Country: None (occurrence: None)
  Receive Date: 20110118
  Receipt Date: 20110112
  Transmission Date: 20110831
  Serious: Yes (Hospitalization)
  Sender: FDA-Public Use
  Company Number: GB-ROCHE-751789

PATIENT
  Sex: Male
  Weight: 59.2 kg

DRUGS (3)
  1. PEGINTERFERON ALFA-2A [Suspect]
     Indication: HEPATITIS C
     Dosage: DRUG WITHDRAWN
     Route: 065
  2. RIBAVIRIN [Suspect]
     Indication: HEPATITIS C
     Dosage: DRUG WITHDRAWN
     Route: 065
  3. BLINDED TMC435 [Suspect]
     Indication: HEPATITIS C
     Dosage: DRUG WITHDRAWN, BLIND BROKEN
     Route: 065

REACTIONS (2)
  - HISTIOCYTOSIS HAEMATOPHAGIC [None]
  - LOWER RESPIRATORY TRACT INFECTION [None]
